FAERS Safety Report 25190454 (Version 1)
Quarter: 2025Q2

REPORT INFORMATION
  Report Type: Spontaneous
  Country: US (occurrence: US)
  Receive Date: 20250411
  Receipt Date: 20250411
  Transmission Date: 20250716
  Serious: Yes (Hospitalization, Other)
  Sender: Kenvue
  Company Number: None

PATIENT
  Age: 8 Decade
  Sex: Female

DRUGS (6)
  1. IBUPROFEN [Suspect]
     Active Substance: IBUPROFEN
     Indication: Spinal stenosis
     Route: 065
     Dates: end: 2023
  2. IBUPROFEN [Suspect]
     Active Substance: IBUPROFEN
     Indication: Neuropathy peripheral
  3. AMOXICILLIN [Suspect]
     Active Substance: AMOXICILLIN
     Indication: Peritonsillar abscess
     Route: 065
     Dates: start: 2023, end: 2023
  4. AMOXICILLIN [Suspect]
     Active Substance: AMOXICILLIN
     Indication: Dental disorder prophylaxis
  5. BACLOFEN [Concomitant]
     Active Substance: BACLOFEN
     Indication: Sleep disorder
     Route: 065
  6. PROCHLORPERAZINE [Concomitant]
     Active Substance: PROCHLORPERAZINE
     Indication: Nausea
     Route: 065

REACTIONS (1)
  - Meningitis aseptic [Recovered/Resolved]

NARRATIVE: CASE EVENT DATE: 20230101
